FAERS Safety Report 9471041 (Version 4)
Quarter: 2013Q4

REPORT INFORMATION
  Report Type: Spontaneous
  Country: DE (occurrence: None)
  Receive Date: 20130816
  Receipt Date: 20131021
  Transmission Date: 20140711
  Serious: Yes (Hospitalization)
  Sender: FDA-Public Use
  Company Number: 2013MPI00471

PATIENT
  Age: 23 Year
  Sex: Male
  Weight: 77 kg

DRUGS (10)
  1. BRENTUXIMAB VEDOLIN [Suspect]
     Indication: HODGKIN^S DISEASE
     Dosage: ?
     Route: 042
     Dates: start: 20130717, end: 20130717
  2. ETOPOSIDE [Suspect]
     Indication: HODGKIN^S DISEASE
     Route: 042
     Dates: start: 20130718, end: 20130720
  3. CYCLOPHOSPHAMIDE (CYCLOPHOSPHAMIDE) [Suspect]
     Indication: HODGKIN^S DISEASE
     Route: 042
     Dates: start: 20130719, end: 20130718
  4. DOXORUBICIN [Suspect]
     Indication: HODGKIN^S DISEASE
     Route: 042
     Dates: start: 20130718, end: 20130718
  5. PROCARBAZINE [Suspect]
     Indication: HODGKIN^S DISEASE
     Route: 042
     Dates: start: 20130718, end: 20130724
  6. PREDNISONE [Suspect]
     Indication: HODGKIN^S DISEASE
     Dosage: 40 MG/M2, ORAL
     Route: 048
     Dates: start: 20130718, end: 20130727
  7. NEULASTA (PEGFILGRASTIM) [Concomitant]
  8. PRILOSEC [Concomitant]
  9. CIPROFLOXACIN (CIPROFLOXACIN HYDROCHLORIDE) [Concomitant]
  10. SULFAMETHOXAZOLE AND TRIMETHOPRIM (SULFAMETHOXAZOLE, TRIMETHOPRIM) [Concomitant]

REACTIONS (14)
  - Hypokalaemia [None]
  - Diarrhoea [None]
  - Pyrexia [None]
  - Neutropenia [None]
  - C-reactive protein increased [None]
  - White blood cell count decreased [None]
  - Blood calcium decreased [None]
  - Haemoglobin decreased [None]
  - Haematocrit decreased [None]
  - Sepsis [None]
  - Mucosal inflammation [None]
  - Hypotension [None]
  - Herpes simplex [None]
  - Bone marrow failure [None]
